FAERS Safety Report 8467855 (Version 3)
Quarter: 2012Q4

REPORT INFORMATION
  Report Type: 
  Country: US (occurrence: US)
  Receive Date: 20120229
  Receipt Date: 20121109
  Transmission Date: 20130627
  Serious: Yes (Hospitalization, Other)
  Sender: FDA-Public Use
  Company Number: PHEH2010US03854

PATIENT
  Sex: Male

DRUGS (3)
  1. TEGRETOL [Suspect]
     Indication: CONVULSION
     Dosage: 75 mg, BID
     Route: 048
  2. BACITRACIN [Concomitant]
  3. LACRILUBE [Concomitant]

REACTIONS (49)
  - Toxic epidermal necrolysis [Unknown]
  - Stevens-Johnson syndrome [Recovering/Resolving]
  - Rash [Unknown]
  - Pruritus [Unknown]
  - Skin discolouration [Unknown]
  - Skin exfoliation [Unknown]
  - Alopecia [Unknown]
  - Nail disorder [Unknown]
  - Pigmentation disorder [Unknown]
  - Urticaria [Unknown]
  - Swelling [Unknown]
  - Skin lesion [Unknown]
  - Skin burning sensation [Unknown]
  - Mucous membrane disorder [Unknown]
  - Scar [Unknown]
  - Blindness [Recovering/Resolving]
  - Internal injury [Unknown]
  - Hypersensitivity [Unknown]
  - Erythema multiforme [Unknown]
  - Bronchitis [Unknown]
  - Lung consolidation [Unknown]
  - Pneumonia [Recovered/Resolved]
  - Hypoxia [Unknown]
  - Atelectasis [Unknown]
  - Varicella [Unknown]
  - Pneumothorax [Unknown]
  - Pharyngitis [Unknown]
  - Wound [Unknown]
  - Lacrimation decreased [Unknown]
  - Symblepharon [Unknown]
  - Ear pain [Unknown]
  - Otitis media [Unknown]
  - Keratitis [Unknown]
  - Conjunctival scar [Unknown]
  - Corneal opacity [Unknown]
  - Cellulitis [Unknown]
  - Abscess limb [Unknown]
  - Lung infiltration [Recovering/Resolving]
  - Anaemia [Unknown]
  - Leukocytosis [Unknown]
  - Cerumen impaction [Unknown]
  - Drug hypersensitivity [Unknown]
  - Lagophthalmos [Unknown]
  - Trichiasis [Unknown]
  - Corneal scar [Unknown]
  - Malnutrition [Unknown]
  - Hyponatraemia [Recovered/Resolved]
  - Dysuria [Unknown]
  - Scrotal ulcer [Recovering/Resolving]
